FAERS Safety Report 11853131 (Version 3)
Quarter: 2016Q1

REPORT INFORMATION
  Report Type: Report from Study
  Country: US (occurrence: US)
  Receive Date: 20151218
  Receipt Date: 20160105
  Transmission Date: 20160526
  Serious: Yes (Hospitalization, Other)
  Sender: FDA-Public Use
  Company Number: US-GILEAD-2015-0183622

PATIENT
  Age: 63 Year
  Sex: Female

DRUGS (18)
  1. LASIX [Concomitant]
     Active Substance: FUROSEMIDE
  2. AMBRISENTAN [Suspect]
     Active Substance: AMBRISENTAN
     Indication: PULMONARY ARTERIAL HYPERTENSION
     Dosage: 10 MG, QD
     Route: 065
     Dates: start: 20141205
  3. ORENITRAM [Suspect]
     Active Substance: TREPROSTINIL
     Indication: PRODUCT USED FOR UNKNOWN INDICATION
     Route: 065
  4. IRON [Concomitant]
     Active Substance: IRON
  5. NEURONTIN [Concomitant]
     Active Substance: GABAPENTIN
  6. WELLBUTRIN [Concomitant]
     Active Substance: BUPROPION HYDROCHLORIDE
  7. RISPERIDONE. [Concomitant]
     Active Substance: RISPERIDONE
  8. GLIPIZIDE. [Concomitant]
     Active Substance: GLIPIZIDE
  9. IPRATROPIUM [Concomitant]
     Active Substance: IPRATROPIUM
  10. ENALAPRIL [Concomitant]
     Active Substance: ENALAPRIL
  11. ZOLOFT [Concomitant]
     Active Substance: SERTRALINE HYDROCHLORIDE
  12. CRANBERRY                          /01512301/ [Concomitant]
     Active Substance: CRANBERRY
  13. NEXIUM [Concomitant]
     Active Substance: ESOMEPRAZOLE MAGNESIUM
  14. IPRATROPIUM BROMIDE. [Concomitant]
     Active Substance: IPRATROPIUM BROMIDE
  15. SPIRIVA [Concomitant]
     Active Substance: TIOTROPIUM BROMIDE MONOHYDRATE
  16. FISH OIL [Concomitant]
     Active Substance: FISH OIL
  17. ALBUTEROL                          /00139501/ [Concomitant]
     Active Substance: ALBUTEROL
  18. LOMOTIL [Concomitant]
     Active Substance: ATROPINE SULFATE\DIPHENOXYLATE HYDROCHLORIDE

REACTIONS (7)
  - Gastrointestinal haemorrhage [Unknown]
  - Diarrhoea [Unknown]
  - Oedema peripheral [Unknown]
  - Sleep apnoea syndrome [Unknown]
  - Peripheral swelling [Unknown]
  - Gastrointestinal erosion [Unknown]
  - Bradycardia [Unknown]

NARRATIVE: CASE EVENT DATE: 20151119
